FAERS Safety Report 24958297 (Version 2)
Quarter: 2025Q1

REPORT INFORMATION
  Report Type: Report from Study
  Country: CN (occurrence: CN)
  Receive Date: 20250212
  Receipt Date: 20250220
  Transmission Date: 20250409
  Serious: Yes (Hospitalization)
  Sender: ROCHE
  Company Number: CN-ROCHE-10000203424

PATIENT
  Age: 81 Year
  Sex: Female
  Weight: 70 kg

DRUGS (2)
  1. MABTHERA [Suspect]
     Active Substance: RITUXIMAB
     Indication: Diffuse large B-cell lymphoma
     Route: 040
     Dates: start: 202306
  2. ORELABRUTINIB [Suspect]
     Active Substance: ORELABRUTINIB
     Indication: Diffuse large B-cell lymphoma
     Route: 065

REACTIONS (3)
  - Metastases to liver [Unknown]
  - Lymphadenopathy [Recovered/Resolved]
  - Metastases to lymph nodes [Not Recovered/Not Resolved]

NARRATIVE: CASE EVENT DATE: 20240401
